FAERS Safety Report 18716249 (Version 1)
Quarter: 2021Q1

REPORT INFORMATION
  Report Type: Spontaneous
  Country: US (occurrence: US)
  Receive Date: 20210107
  Receipt Date: 20210107
  Transmission Date: 20210419
  Serious: No
  Sender: FDA-Public Use
  Company Number: None

PATIENT
  Age: 64 Year
  Sex: Male

DRUGS (1)
  1. METFORMIN (METFORMIN HCL 500MG TAB,SA) [Suspect]
     Active Substance: METFORMIN HYDROCHLORIDE
     Indication: DIABETES MELLITUS
     Route: 048
     Dates: start: 20190808, end: 20200415

REACTIONS (2)
  - Metabolic acidosis [None]
  - Blood lactic acid increased [None]

NARRATIVE: CASE EVENT DATE: 20200413
